FAERS Safety Report 4957367-5 (Version None)
Quarter: 2006Q1

REPORT INFORMATION
  Report Type: 
  Country: None (occurrence: None)
  Receive Date: 20060327
  Receipt Date: 20060316
  Transmission Date: 20060701
  Serious: Yes (Hospitalization)
  Sender: FDA-Public Use
  Company Number: 2006-DE-01451GD

PATIENT
  Age: 5 Year
  Sex: Female

DRUGS (2)
  1. MORPHINE [Suspect]
     Dosage: PO
     Route: 048
  2. OXYCODONE (OXYCODONE) [Suspect]
     Dosage: PO
     Route: 048

REACTIONS (11)
  - ACCIDENTAL DRUG INTAKE BY CHILD [None]
  - CLUMSINESS [None]
  - DEPRESSED LEVEL OF CONSCIOUSNESS [None]
  - DRUG TOXICITY [None]
  - HEART RATE INCREASED [None]
  - HYPOVENTILATION [None]
  - LETHARGY [None]
  - MIOSIS [None]
  - RESPIRATORY DEPRESSION [None]
  - RESPIRATORY RATE DECREASED [None]
  - SOMNOLENCE [None]
